FAERS Safety Report 8160160-6 (Version None)
Quarter: 2012Q1

REPORT INFORMATION
  Report Type: 
  Country: None (occurrence: None)
  Receive Date: 20120223
  Receipt Date: 20120220
  Transmission Date: 20120608
  Serious: Yes (Death)
  Sender: FDA-Public Use
  Company Number: CL-MEDIMMUNE-MEDI-0013328

PATIENT
  Sex: Female
  Weight: 3 kg

DRUGS (1)
  1. SYNAGIS [Suspect]
     Route: 030
     Dates: start: 20110523, end: 20110623

REACTIONS (1)
  - CARDIO-RESPIRATORY ARREST [None]
